FAERS Safety Report 16407587 (Version 2)
Quarter: 2019Q3

REPORT INFORMATION
  Report Type: Spontaneous
  Country: JP (occurrence: JP)
  Receive Date: 20190609
  Receipt Date: 20190703
  Transmission Date: 20191004
  Serious: Yes (Hospitalization)
  Sender: FDA-Public Use
  Company Number: PHHY2019JP127714

PATIENT
  Age: 8 Month
  Sex: Male

DRUGS (3)
  1. CORTRIL [Suspect]
     Active Substance: HYDROCORTISONE
     Dosage: 4 MG/KG, UNK
     Route: 048
  2. CORTRIL [Suspect]
     Active Substance: HYDROCORTISONE
     Indication: HYPOGLYCAEMIA
     Dosage: 1.4 MG/KG, UNK
     Route: 048
  3. PREDNISOLONE. [Suspect]
     Active Substance: PREDNISOLONE
     Indication: PRODUCT USED FOR UNKNOWN INDICATION
     Dosage: 0.35 MG/KG, QD
     Route: 065

REACTIONS (4)
  - Tachypnoea [Recovering/Resolving]
  - Pneumocystis jirovecii pneumonia [Recovered/Resolved]
  - Respiratory distress [Recovering/Resolving]
  - Tachycardia [Recovering/Resolving]
